FAERS Safety Report 8284754-2 (Version None)
Quarter: 2012Q2

REPORT INFORMATION
  Report Type: 
  Country: None (occurrence: None)
  Receive Date: 20120413
  Receipt Date: 20111220
  Transmission Date: 20120825
  Serious: No
  Sender: FDA-Public Use
  Company Number: US-ASTRAZENECA-2011SE77490

PATIENT
  Sex: Female

DRUGS (10)
  1. TOPROL-XL [Suspect]
     Route: 048
  2. ACETAMINOPHEN [Concomitant]
  3. PROMETHAZINE [Concomitant]
  4. ASPIRIN [Concomitant]
  5. SERTRALINE HYDROCHLORIDE [Concomitant]
  6. NEXIUM [Suspect]
     Route: 048
  7. TRIAMTERENE AND HYDROCHLOROTHIAZIDE [Concomitant]
     Dosage: 37.5/25 MG
  8. NAPROSYN [Concomitant]
  9. TRAZODONE HCL [Concomitant]
  10. IMDUR CR [Concomitant]
     Route: 048

REACTIONS (2)
  - HYPERTENSION [None]
  - CORONARY ARTERY DISEASE [None]
